FAERS Safety Report 16547508 (Version 2)
Quarter: 2021Q3

REPORT INFORMATION
  Report Type: Spontaneous
  Country: US (occurrence: US)
  Receive Date: 20190709
  Receipt Date: 20210709
  Transmission Date: 20211014
  Serious: No
  Sender: FDA-Public Use
  Company Number: US-ASTELLAS-2019US025063

PATIENT
  Age: 83 Year
  Sex: Female

DRUGS (1)
  1. MYRBETRIQ [Suspect]
     Active Substance: MIRABEGRON
     Indication: PRODUCT USED FOR UNKNOWN INDICATION
     Dosage: UNK UNK, ONCE DAILY (HALF 50 MG TABLET)
     Route: 065
     Dates: start: 20190516, end: 20190610

REACTIONS (4)
  - Treatment noncompliance [Unknown]
  - Wrong technique in product usage process [Unknown]
  - Product prescribing error [Unknown]
  - Drug ineffective [Unknown]

NARRATIVE: CASE EVENT DATE: 20190516
